FAERS Safety Report 17850340 (Version 5)
Quarter: 2020Q3

REPORT INFORMATION
  Report Type: Spontaneous
  Country: GB (occurrence: GB)
  Receive Date: 20200602
  Receipt Date: 20200727
  Transmission Date: 20201103
  Serious: Yes (Other)
  Sender: FDA-Public Use
  Company Number: GB-SA-2020SA137813

PATIENT

DRUGS (4)
  1. THYMOGLOBULINE [Suspect]
     Active Substance: LAPINE T-LYMPHOCYTE IMMUNE GLOBULIN
     Dosage: 2.5 MG/KG
     Route: 042
  2. THYMOGLOBULINE [Suspect]
     Active Substance: LAPINE T-LYMPHOCYTE IMMUNE GLOBULIN
     Dosage: 25 MG (QUANTITY DISPENSED 18X25MG)
  3. FLUDARABINE [Concomitant]
     Active Substance: FLUDARABINE PHOSPHATE
     Dosage: UNK
  4. THYMOGLOBULINE [Suspect]
     Active Substance: LAPINE T-LYMPHOCYTE IMMUNE GLOBULIN
     Dosage: 25 MG (QUANTITY DISPENSED 1X25MG)

REACTIONS (9)
  - Dyspnoea [Recovered/Resolved]
  - Respiratory tract infection [Unknown]
  - Herpes zoster [Recovered/Resolved]
  - Blood creatinine increased [Unknown]
  - Anaphylactic reaction [Recovered/Resolved]
  - Pyrexia [Recovered/Resolved]
  - Thrombosis in device [Recovered/Resolved]
  - Hypotension [Recovered/Resolved]
  - Tonsillitis [Recovered/Resolved]
